FAERS Safety Report 21059510 (Version 4)
Quarter: 2022Q4

REPORT INFORMATION
  Report Type: Report from Study
  Country: KR (occurrence: KR)
  Receive Date: 20220708
  Receipt Date: 20221206
  Transmission Date: 20230112
  Serious: Yes (Hospitalization)
  Sender: FDA-Public Use
  Company Number: KR-BRISTOL-MYERS SQUIBB COMPANY-2022-067100

PATIENT
  Age: 41 Year
  Sex: Female
  Weight: 52.1 kg

DRUGS (23)
  1. NIVOLUMAB [Suspect]
     Active Substance: NIVOLUMAB
     Indication: Gastrooesophageal cancer
     Route: 042
     Dates: start: 20220614, end: 20220614
  2. REGORAFENIB [Suspect]
     Active Substance: REGORAFENIB
     Indication: Gastrooesophageal cancer
     Route: 048
     Dates: start: 20220614, end: 20220627
  3. ZOLPIDEM TARTRATE [Concomitant]
     Active Substance: ZOLPIDEM TARTRATE
     Indication: Product used for unknown indication
     Route: 048
     Dates: start: 20220530, end: 20220605
  4. ZOLPIDEM TARTRATE [Concomitant]
     Active Substance: ZOLPIDEM TARTRATE
     Route: 048
     Dates: start: 20220609, end: 20220620
  5. .ALPHA.-TOCOPHEROL ACETATE\ALLANTOIN\LIDOCAINE\PREDNISOLONE [Concomitant]
     Active Substance: .ALPHA.-TOCOPHEROL ACETATE\ALLANTOIN\LIDOCAINE\PREDNISOLONE
     Indication: Gastrooesophageal cancer
     Dosage: PRN
     Route: 054
     Dates: start: 20220530, end: 20220601
  6. CALCIUM POLYCARBOPHIL [Concomitant]
     Active Substance: CALCIUM POLYCARBOPHIL
     Indication: Prophylaxis
     Dosage: TID
     Route: 048
     Dates: start: 20220601, end: 20220603
  7. IBUPROFEN ARGININE [Concomitant]
     Active Substance: IBUPROFEN ARGININE
     Indication: Gastrooesophageal cancer
     Dosage: TID
     Route: 048
     Dates: start: 20220601, end: 20220610
  8. TIROPRAMIDE HYDROCHLORIDE [Concomitant]
     Indication: Gastrooesophageal cancer
     Dosage: TID
     Route: 048
     Dates: start: 20220601, end: 20220610
  9. MIRABEGRON [Concomitant]
     Active Substance: MIRABEGRON
     Indication: Prophylaxis
     Dates: start: 20220601
  10. LACTULOSE [Concomitant]
     Active Substance: LACTULOSE
     Indication: Prophylaxis
     Route: 065
     Dates: start: 20220601, end: 20220610
  11. CAFSOL [Concomitant]
     Indication: Prophylaxis
     Route: 042
     Dates: start: 20220601, end: 20220601
  12. TAMSULOSIN HYDROCHLORIDE [Concomitant]
     Active Substance: TAMSULOSIN HYDROCHLORIDE
     Indication: Prophylaxis
     Route: 048
     Dates: start: 20220602
  13. FLOMOXEF SODIUM [Concomitant]
     Active Substance: FLOMOXEF SODIUM
     Indication: Prophylaxis
     Route: 042
     Dates: start: 20220602, end: 20220603
  14. TIROPRAMIDE HYDROCHLORIDE [Concomitant]
     Indication: Gastrooesophageal cancer
     Dosage: PRN
     Route: 042
     Dates: start: 20220602, end: 20220603
  15. MEPERIDINE HYDROCHLORIDE [Concomitant]
     Active Substance: MEPERIDINE HYDROCHLORIDE
     Indication: Prophylaxis
     Route: 030
     Dates: start: 20220602, end: 20220602
  16. KETOROLAC TROMETHAMINE [Concomitant]
     Active Substance: KETOROLAC TROMETHAMINE
     Indication: Gastrooesophageal cancer
     Route: 030
     Dates: start: 20220602, end: 20220602
  17. CEFIXIME [Concomitant]
     Active Substance: CEFIXIME
     Indication: Prophylaxis
     Route: 048
     Dates: start: 20220603
  18. FENTANYL [Concomitant]
     Active Substance: FENTANYL
     Indication: Prophylaxis
     Dosage: PRN
     Route: 048
     Dates: start: 20220609, end: 20220612
  19. METOCLOPRAMIDE [Concomitant]
     Active Substance: METOCLOPRAMIDE
     Indication: Prophylaxis
     Dosage: PRN
     Route: 048
     Dates: start: 20220614
  20. LORAZEPAM [Concomitant]
     Active Substance: LORAZEPAM
     Indication: Product used for unknown indication
     Dosage: PRN
     Route: 048
     Dates: start: 20220620
  21. ETIZOLAM [Concomitant]
     Active Substance: ETIZOLAM
     Indication: Product used for unknown indication
     Dosage: PRN,TID
     Route: 048
     Dates: start: 20220627, end: 20220628
  22. ACETAMINOPHEN [Concomitant]
     Active Substance: ACETAMINOPHEN
     Indication: Product used for unknown indication
     Dosage: PRN
     Route: 042
     Dates: start: 20220623, end: 20220623
  23. MAGNESIUM HYDROXIDE [Concomitant]
     Active Substance: MAGNESIUM HYDROXIDE
     Indication: Prophylaxis
     Dosage: PRN?TID
     Route: 048
     Dates: start: 20220609

REACTIONS (1)
  - Rash maculo-papular [Recovered/Resolved]

NARRATIVE: CASE EVENT DATE: 20220628
